FAERS Safety Report 22105454 (Version 3)
Quarter: 2023Q4

REPORT INFORMATION
  Report Type: Report from Study
  Country: US (occurrence: US)
  Receive Date: 20230317
  Receipt Date: 20231026
  Transmission Date: 20240109
  Serious: Yes (Other)
  Sender: FDA-Public Use
  Company Number: US-ACADIA PHARMACEUTICALS INC.-ACA-2023-PIM-000766

PATIENT
  Age: 79 Year
  Sex: Female

DRUGS (19)
  1. NUPLAZID [Suspect]
     Active Substance: PIMAVANSERIN TARTRATE
     Indication: Parkinson^s disease
     Dosage: 34 MILLIGRAM, QD
     Route: 048
     Dates: start: 20221019, end: 202309
  2. NUPLAZID [Suspect]
     Active Substance: PIMAVANSERIN TARTRATE
     Indication: Hallucination
  3. PATCH [Suspect]
     Active Substance: MENTHOL
     Indication: Drooling
  4. DONEPEZIL [Concomitant]
     Active Substance: DONEPEZIL
     Dosage: 10 MILLIGRAM
  5. INBRIJA [Concomitant]
     Active Substance: LEVODOPA
     Dosage: 42 MILLIGRAM
  6. KETOROLAC [Concomitant]
     Active Substance: KETOROLAC TROMETHAMINE
     Dosage: 0.4% SOL
  7. LEVOTHYROXINE [Concomitant]
     Active Substance: LEVOTHYROXINE
     Dosage: 100 MICROGRAM
  8. MAGNESIUM OXIDE [Concomitant]
     Active Substance: MAGNESIUM OXIDE
     Dosage: 400 MILLIGRAM
  9. MELATONIN [Concomitant]
     Active Substance: MELATONIN
     Dosage: 1 MILLIGRAM
  10. METHENAMINE HIPPURATE [Concomitant]
     Active Substance: METHENAMINE HIPPURATE
     Dosage: 1 GRAM
  11. NITROGLYCERIN [Concomitant]
     Active Substance: NITROGLYCERIN
     Dosage: 0.4 MG
     Route: 060
  12. OMEPRAZOLE [Concomitant]
     Active Substance: OMEPRAZOLE
     Dosage: 40 MILLIGRAM
  13. PRAMIPEXOLE [Concomitant]
     Active Substance: PRAMIPEXOLE
     Dosage: 3.75 ER
  14. PROBIOTICS NOS [Concomitant]
     Active Substance: PROBIOTICS NOS
  15. QUETIAPINE [Concomitant]
     Active Substance: QUETIAPINE
     Dosage: 25 MILLIGRAM
  16. RASAGILINE [Concomitant]
     Active Substance: RASAGILINE
     Dosage: 1 MILLIGRAM
  17. RYTARY [Concomitant]
     Active Substance: CARBIDOPA\LEVODOPA
     Dosage: 95 MILLIGRAM
  18. XADAGO [Concomitant]
     Active Substance: SAFINAMIDE MESYLATE
     Dosage: 100 MILLIGRAM
  19. CARBIDOPA [Concomitant]
     Active Substance: CARBIDOPA
     Dosage: 25 MILLIGRAM

REACTIONS (6)
  - Depressed level of consciousness [Unknown]
  - Depressed level of consciousness [Not Recovered/Not Resolved]
  - Condition aggravated [Unknown]
  - Speech disorder [Unknown]
  - Nonspecific reaction [Not Recovered/Not Resolved]
  - Hallucination [Not Recovered/Not Resolved]

NARRATIVE: CASE EVENT DATE: 20230901
